FAERS Safety Report 8246828-1 (Version None)
Quarter: 2012Q1

REPORT INFORMATION
  Report Type: 
  Country: None (occurrence: None)
  Receive Date: 20120330
  Receipt Date: 20120326
  Transmission Date: 20120608
  Serious: No
  Sender: FDA-Public Use
  Company Number: US-PFIZER INC-2012053751

PATIENT
  Sex: Female

DRUGS (1)
  1. XALKORI [Suspect]
     Dosage: 250 MG, 1X/DAY
     Dates: start: 20120215

REACTIONS (3)
  - DIZZINESS [None]
  - HEADACHE [None]
  - COUGH [None]
